FAERS Safety Report 6414558-4 (Version None)
Quarter: 2009Q4

REPORT INFORMATION
  Report Type: 
  Country: None (occurrence: None)
  Receive Date: 20091021
  Receipt Date: 20091014
  Transmission Date: 20100525
  Serious: Yes (Hospitalization)
  Sender: FDA-Public Use
  Company Number: US-2009-00260

PATIENT
  Age: 75 Year
  Sex: Male

DRUGS (1)
  1. LEVETIRACETAM (1 GRAM) [Suspect]
     Dosage: 1 GRAM DAILY

REACTIONS (5)
  - ACTIVATED PARTIAL THROMBOPLASTIN TIME PROLONGED [None]
  - CEREBRAL AMYLOID ANGIOPATHY [None]
  - HAEMOSTASIS [None]
  - PLATELET COUNT INCREASED [None]
  - SUBARACHNOID HAEMORRHAGE [None]
